FAERS Safety Report 6074475-9 (Version None)
Quarter: 2009Q1

REPORT INFORMATION
  Report Type: 
  Country: None (occurrence: None)
  Receive Date: 20090206
  Receipt Date: 20090123
  Transmission Date: 20090719
  Serious: Yes (Hospitalization)
  Sender: FDA-Public Use
  Company Number: JPI-P-006006

PATIENT
  Age: 20 Year
  Sex: Male

DRUGS (1)
  1. XYREM [Suspect]
     Indication: CATAPLEXY
     Dosage: 4.5 GM (2.25 GM, 2 IN 1 D) ,ORAL
     Route: 048
     Dates: start: 20081101

REACTIONS (4)
  - ANOXIA [None]
  - CARDIO-RESPIRATORY ARREST [None]
  - CONVULSION [None]
  - OXYGEN SATURATION INCREASED [None]
